FAERS Safety Report 19130080 (Version 1)
Quarter: 2021Q2

REPORT INFORMATION
  Report Type: Report from Study
  Country: None (occurrence: US)
  Receive Date: 20210414
  Receipt Date: 20210414
  Transmission Date: 20210717
  Serious: Yes (Other)
  Sender: FDA-Public Use
  Company Number: US-ABBVIE-21K-163-3834950-00

PATIENT
  Age: 73 Year
  Sex: Female

DRUGS (1)
  1. HUMIRA [Suspect]
     Active Substance: ADALIMUMAB
     Indication: COLITIS ULCERATIVE
     Dosage: CITRATE FREE
     Route: 058
     Dates: end: 2021

REACTIONS (4)
  - Speech disorder [Recovering/Resolving]
  - Condition aggravated [Unknown]
  - Intervertebral disc degeneration [Recovered/Resolved]
  - Intervertebral disc degeneration [Recovering/Resolving]

NARRATIVE: CASE EVENT DATE: 2016
